FAERS Safety Report 4590949-1 (Version None)
Quarter: 2005Q1

REPORT INFORMATION
  Report Type: 
  Country: None (occurrence: None)
  Receive Date: 20050217
  Receipt Date: 20050210
  Transmission Date: 20050727
  Serious: Yes (Hospitalization)
  Sender: FDA-Public Use
  Company Number: 163-20785-05020218

PATIENT
  Age: 73 Year
  Sex: Male

DRUGS (1)
  1. THALOMID [Suspect]
     Indication: MYELODYSPLASTIC SYNDROME
     Dosage: 100 MG, QD, ORAL
     Route: 048
     Dates: start: 20040119, end: 20050101

REACTIONS (4)
  - FALL [None]
  - HEAD INJURY [None]
  - NAUSEA [None]
  - RENAL FAILURE ACUTE [None]
